FAERS Safety Report 12834212 (Version 2)
Quarter: 2016Q4

REPORT INFORMATION
  Report Type: Report from Study
  Country: ZA (occurrence: ZA)
  Receive Date: 20161010
  Receipt Date: 20161028
  Transmission Date: 20170207
  Serious: Yes (Hospitalization)
  Sender: FDA-Public Use
  Company Number: ZA-B.I. PHARMACEUTICALS,INC./RIDGEFIELD-2016-BI-49176BI

PATIENT
  Age: 74 Year
  Sex: Female

DRUGS (6)
  1. GLICLAZIDE [Concomitant]
     Active Substance: GLICLAZIDE
     Indication: DIABETES MELLITUS
     Dosage: START DATE: 8 WEEKS PRIOR TO RANDOMIZATION.
     Route: 048
  2. BILOCID [Concomitant]
     Indication: HYPERTENSION
     Dosage: START DATE: 8 WEEKS PRIOR TO RANDOMIZATION.
     Route: 048
  3. BLINDED LINAGLIPTIN [Suspect]
     Active Substance: LINAGLIPTIN
     Indication: TYPE 2 DIABETES MELLITUS
     Route: 048
     Dates: end: 201409
  4. DISPRIN CARDIOCARE [Concomitant]
     Indication: HYPERTENSION
     Dosage: START DATE: 8 WEEKS PRIOR TO RANDOMIZATION.
     Route: 048
  5. AMLODIPINE [Concomitant]
     Active Substance: AMLODIPINE BESYLATE
     Indication: HYPERTENSION
     Route: 048
     Dates: start: 20150720
  6. GLUCOPHAGE [Concomitant]
     Active Substance: METFORMIN HYDROCHLORIDE
     Indication: DIABETES MELLITUS
     Dosage: START DATE: 8 WEEKS PRIOR TO RANDOMIZATION.
     Route: 048

REACTIONS (4)
  - Glomerular filtration rate decreased [Unknown]
  - Pneumonia [Not Recovered/Not Resolved]
  - Glomerular filtration rate abnormal [Not Recovered/Not Resolved]
  - Glomerular filtration rate decreased [Unknown]

NARRATIVE: CASE EVENT DATE: 20160119
